FAERS Safety Report 18595403 (Version 26)
Quarter: 2021Q4

REPORT INFORMATION
  Report Type: Spontaneous
  Country: BR (occurrence: BR)
  Receive Date: 20201209
  Receipt Date: 20211015
  Transmission Date: 20220303
  Serious: Yes (Other)
  Sender: FDA-Public Use
  Company Number: BR-IPSEN BIOPHARMACEUTICALS, INC.-2020-13409

PATIENT
  Age: 72 Year
  Sex: Female
  Weight: 85 kg

DRUGS (12)
  1. LANREOTIDE ACETATE [Suspect]
     Active Substance: LANREOTIDE ACETATE
     Indication: Acromegaly
     Dosage: 120 MG, 1 SYRINGE EVERY 30 DAYS
     Route: 058
     Dates: start: 2014, end: 2018
  2. LANREOTIDE ACETATE [Suspect]
     Active Substance: LANREOTIDE ACETATE
     Dosage: 120 MG, 1 SYRINGE EVERY 30 DAYS
     Route: 058
  3. CABERGOLINE [Suspect]
     Active Substance: CABERGOLINE
     Indication: Product used for unknown indication
     Dosage: 3 TABLETS PER WEEK ON MONDAY, WEDNESDAY AND FRIDAY
  4. HYDROCHLOROTHIAZIDE [Concomitant]
     Active Substance: HYDROCHLOROTHIAZIDE
     Indication: Hypertension
     Dosage: 4 TABLETS/ NIGHT
     Route: 048
     Dates: start: 1990
  5. ENALAPRIL [Concomitant]
     Active Substance: ENALAPRIL
     Indication: Hypertension
     Dosage: 2 TABLETS/DAY
     Route: 048
     Dates: start: 1990
  6. GLIFAGE [Concomitant]
     Active Substance: METFORMIN HYDROCHLORIDE
     Indication: Diabetes mellitus
     Route: 030
     Dates: start: 1990
  7. NPH INSULIN [Concomitant]
     Active Substance: INSULIN BEEF
     Indication: Diabetes mellitus
     Dosage: DAILY DOSE: 88 IU (38 UNIT AT BREAKFAST, 20 UNIT AT LUNCH AND 30 UNIT AT DINNER)
     Route: 030
     Dates: start: 1990
  8. INSULIN NOS [Concomitant]
     Active Substance: INSULIN NOS
     Indication: Diabetes mellitus
     Dosage: 1 TIME EACH DAY WHEN IT IS NECESSARY (WHEN GLUCOSE LEVEL IS HIGH)
     Route: 030
     Dates: start: 1990
  9. PURAN [Concomitant]
     Active Substance: LEVOTHYROXINE SODIUM
     Indication: Hypothyroidism
     Dosage: 1 TABLET PER DAY
     Route: 048
     Dates: start: 1990
  10. COVID-19 VACCINE [Concomitant]
     Dates: start: 2021, end: 2021
  11. COVID-19 VACCINE [Concomitant]
     Dates: start: 20210406, end: 20210406
  12. VITAMIN D NOS [Concomitant]
     Active Substance: VITAMIN D NOS
     Indication: Arthralgia
     Dosage: 7000 U ONCE PER WEEK
     Route: 065
     Dates: start: 20210927

REACTIONS (16)
  - Dizziness [Recovered/Resolved]
  - Eye haemorrhage [Recovered/Resolved]
  - Dry skin [Recovered/Resolved]
  - Injection site pain [Recovered/Resolved]
  - Dry skin [Recovered/Resolved]
  - Dengue fever [Recovered/Resolved]
  - Peripheral swelling [Recovered/Resolved]
  - Hypermetropia [Not Recovered/Not Resolved]
  - Blood triglycerides increased [Not Recovered/Not Resolved]
  - Fall [Recovered/Resolved]
  - Blood glucose increased [Unknown]
  - Nausea [Recovered/Resolved]
  - Nasopharyngitis [Recovering/Resolving]
  - Product availability issue [Unknown]
  - Product dose omission issue [Unknown]
  - Product dose omission issue [Unknown]

NARRATIVE: CASE EVENT DATE: 20190101
